FAERS Safety Report 8230482-9 (Version None)
Quarter: 2012Q1

REPORT INFORMATION
  Report Type: 
  Country: None (occurrence: None)
  Receive Date: 20120323
  Receipt Date: 20110816
  Transmission Date: 20120608
  Serious: Yes (Other)
  Sender: FDA-Public Use
  Company Number: GB-ACCORD-010178

PATIENT
  Age: 69 Year
  Sex: Male

DRUGS (4)
  1. SIMVASTATIN [Suspect]
  2. ASPIRIN [Suspect]
  3. RAMIPRIL [Suspect]
  4. METFORMIN HCL [Suspect]

REACTIONS (1)
  - NAEVUS FLAMMEUS [None]
